FAERS Safety Report 22369285 (Version 1)
Quarter: 2023Q2

REPORT INFORMATION
  Report Type: Spontaneous
  Country: US (occurrence: US)
  Receive Date: 20230526
  Receipt Date: 20230526
  Transmission Date: 20230722
  Serious: Yes (Hospitalization)
  Sender: FDA-Public Use
  Company Number: US-STRIDES ARCOLAB LIMITED-2023SP007680

PATIENT
  Age: 44 Year
  Sex: Male

DRUGS (20)
  1. PHENOBARBITAL [Interacting]
     Active Substance: PHENOBARBITAL
     Indication: Alcohol withdrawal syndrome
     Dosage: UNK (THERAPY COMPLETED)
     Route: 065
  2. METHADONE [Interacting]
     Active Substance: METHADONE HYDROCHLORIDE
     Indication: Drug use disorder
     Dosage: 100 MILLIGRAM PER DAY (PATIENT REQUESTED SWITCHING FROM METHADONE TO BUPRENORPHINE/NALOXONE)
     Route: 065
  3. BUPRENORPHINE [Concomitant]
     Active Substance: BUPRENORPHINE
     Indication: Drug use disorder
     Dosage: 0.5 MILLIGRAM PER DAY, ON DAY-1 OF MICRODOSING PROTOCOL
     Route: 060
  4. BUPRENORPHINE [Concomitant]
     Active Substance: BUPRENORPHINE
     Dosage: 0.5 MILLIGRAM, BID, ON DAY-2
     Route: 060
  5. BUPRENORPHINE [Concomitant]
     Active Substance: BUPRENORPHINE
     Dosage: 1 MILLIGRAM, BID, ON DAY-3
     Route: 060
  6. BUPRENORPHINE [Concomitant]
     Active Substance: BUPRENORPHINE
     Dosage: 2 MILLIGRAM, BID, ON DAY-4
     Route: 060
  7. BUPRENORPHINE [Concomitant]
     Active Substance: BUPRENORPHINE
     Dosage: 3 MILLIGRAM, BID, ON DAY-5
     Route: 060
  8. BUPRENORPHINE [Concomitant]
     Active Substance: BUPRENORPHINE
     Dosage: 4 MILLIGRAM, BID, ON DAY-6
     Route: 060
  9. BUPRENORPHINE [Concomitant]
     Active Substance: BUPRENORPHINE
     Dosage: 6 MILLIGRAM, BID, ON DAY-7
     Route: 060
  10. BUPRENORPHINE [Concomitant]
     Active Substance: BUPRENORPHINE
     Dosage: 8 MILLIGRAM, BID, ON DAY-8
     Route: 060
  11. BUPRENORPHINE [Concomitant]
     Active Substance: BUPRENORPHINE
     Dosage: 20 MILLIGRAM PER DAY
     Route: 060
  12. METHAMPHETAMINE [Concomitant]
     Active Substance: METHAMPHETAMINE
     Indication: Substance use
     Dosage: UNK
     Route: 065
  13. GABAPENTIN [Concomitant]
     Active Substance: GABAPENTIN
     Indication: Product used for unknown indication
     Dosage: UNK
     Route: 065
  14. AMITRIPTYLINE [Concomitant]
     Active Substance: AMITRIPTYLINE
     Indication: Product used for unknown indication
     Dosage: UNK
     Route: 065
  15. OMEPRAZOLE [Concomitant]
     Active Substance: OMEPRAZOLE
     Indication: Product used for unknown indication
     Dosage: UNK
     Route: 065
  16. ACETAMINOPHEN [Concomitant]
     Active Substance: ACETAMINOPHEN
     Indication: Drug therapy
     Dosage: 650 MILLIGRAM PER DAY
     Route: 065
  17. IBUPROFEN [Concomitant]
     Active Substance: IBUPROFEN
     Indication: Drug therapy
     Dosage: 600 MILLIGRAM PER DAY
     Route: 048
  18. CYCLOBENZAPRINE [Concomitant]
     Active Substance: CYCLOBENZAPRINE
     Indication: Drug therapy
     Dosage: 10 MILLIGRAM, BID
     Route: 048
  19. CLONIDINE [Concomitant]
     Active Substance: CLONIDINE
     Indication: Drug therapy
     Dosage: 0.1 MILLIGRAM, TID
     Route: 048
  20. ONDANSETRON [Concomitant]
     Active Substance: ONDANSETRON
     Indication: Drug therapy
     Dosage: 4 MILLIGRAM PER DAY
     Route: 048

REACTIONS (3)
  - Drug interaction [Unknown]
  - Withdrawal syndrome [Recovered/Resolved]
  - Off label use [Unknown]
